FAERS Safety Report 23035065 (Version 1)
Quarter: 2023Q4

REPORT INFORMATION
  Report Type: Spontaneous
  Country: US (occurrence: US)
  Receive Date: 20231005
  Receipt Date: 20231005
  Transmission Date: 20240110
  Serious: No
  Sender: FDA-Public Use
  Company Number: US-SANDOZ-SDZ2023US037631

PATIENT
  Sex: Female

DRUGS (1)
  1. ZARXIO [Suspect]
     Active Substance: FILGRASTIM-SNDZ
     Indication: Neutropenia
     Dosage: 300 ?G (MICROGRAM), OTHER (INJECTION DAILY ON DAYS 4,5 AND 6 OF 14 DAYS CYCLE)
     Route: 058
     Dates: start: 20230914

REACTIONS (1)
  - Neutrophil count increased [Recovering/Resolving]
